FAERS Safety Report 23431077 (Version 1)
Quarter: 2024Q1

REPORT INFORMATION
  Report Type: Report from Study
  Country: FR (occurrence: FR)
  Receive Date: 20240123
  Receipt Date: 20240123
  Transmission Date: 20240410
  Serious: Yes (Death, Other)
  Sender: FDA-Public Use
  Company Number: FR-ABBVIE-5601433

PATIENT
  Age: 76 Year
  Sex: Female

DRUGS (2)
  1. CARBIDOPA\LEVODOPA [Suspect]
     Active Substance: CARBIDOPA\LEVODOPA
     Indication: Parkinson^s disease
     Route: 050
     Dates: start: 20231025
  2. CARBIDOPA\LEVODOPA [Suspect]
     Active Substance: CARBIDOPA\LEVODOPA

REACTIONS (12)
  - Respiratory distress [Fatal]
  - Lung neoplasm malignant [Unknown]
  - Fall [Unknown]
  - Unevaluable event [Unknown]
  - Oxygen saturation decreased [Unknown]
  - Rib fracture [Unknown]
  - COVID-19 [Unknown]
  - Pelvic fracture [Unknown]
  - Fall [Unknown]
  - Respiratory disorder [Unknown]
  - Bronchitis [Unknown]
  - Aplasia [Unknown]

NARRATIVE: CASE EVENT DATE: 20230101
